FAERS Safety Report 14588769 (Version 1)
Quarter: 2018Q1

REPORT INFORMATION
  Report Type: Report from Study
  Country: US (occurrence: US)
  Receive Date: 20180301
  Receipt Date: 20180301
  Transmission Date: 20180509
  Serious: Yes (Hospitalization)
  Sender: FDA-Public Use
  Company Number: US-ACTELION-A-US2013-90077

PATIENT
  Age: 57 Year
  Sex: Female
  Weight: 68.27 kg

DRUGS (5)
  1. VENTAVIS [Suspect]
     Active Substance: ILOPROST
     Dosage: 5 MCG, 4-6X/DAY
     Route: 055
  2. VENTAVIS [Suspect]
     Active Substance: ILOPROST
     Indication: PULMONARY ARTERIAL HYPERTENSION
     Dosage: 5 MCG, 6-9X/DAY
     Route: 055
     Dates: start: 20120523
  3. COUMADIN [Concomitant]
     Active Substance: WARFARIN SODIUM
  4. VENTAVIS [Suspect]
     Active Substance: ILOPROST
     Dosage: 5 MCG, 6-9X/DAY
     Route: 055
     Dates: start: 20120523
  5. VENTAVIS [Suspect]
     Active Substance: ILOPROST
     Dosage: 5 MCG, ONCE DAILY
     Route: 055
     Dates: start: 20120523

REACTIONS (10)
  - Drug dose omission [Unknown]
  - Malaise [Unknown]
  - Seasonal allergy [Unknown]
  - Drug administration error [Recovered/Resolved]
  - Feeling cold [Unknown]
  - Cardiomegaly [Unknown]
  - Throat irritation [Unknown]
  - Incorrect drug administration duration [Unknown]
  - Cough [Unknown]
  - Nasopharyngitis [Unknown]

NARRATIVE: CASE EVENT DATE: 201712
